FAERS Safety Report 6714913-9 (Version None)
Quarter: 2010Q2

REPORT INFORMATION
  Report Type: 
  Country: None (occurrence: None)
  Receive Date: 20100507
  Receipt Date: 20100428
  Transmission Date: 20101027
  Serious: Yes (Other)
  Sender: FDA-Public Use
  Company Number: JP-ASTRAZENECA-2010SE19614

PATIENT
  Age: 70 Year
  Sex: Male

DRUGS (1)
  1. XYLOCAINE [Suspect]
     Route: 065

REACTIONS (1)
  - SHOCK [None]
